FAERS Safety Report 8266382-8 (Version None)
Quarter: 2012Q2

REPORT INFORMATION
  Report Type: 
  Country: None (occurrence: None)
  Receive Date: 20120406
  Receipt Date: 20120330
  Transmission Date: 20120825
  Serious: Yes (Hospitalization)
  Sender: FDA-Public Use
  Company Number: JP-ROCHE-718751

PATIENT
  Sex: Female
  Weight: 107 kg

DRUGS (22)
  1. EPATEC [Concomitant]
     Dosage: PROPER QUANTITY
     Route: 048
  2. ACTEMRA [Suspect]
     Route: 041
     Dates: start: 20090723, end: 20090723
  3. ACTEMRA [Suspect]
     Route: 041
  4. PREDNISOLONE [Suspect]
     Indication: RHEUMATOID ARTHRITIS
     Route: 048
  5. PREDNISOLONE [Suspect]
     Route: 048
     Dates: start: 20091019, end: 20091021
  6. PREDNISOLONE [Suspect]
     Route: 048
  7. KETOPROFEN [Concomitant]
     Dosage: FORM: TAPE
     Route: 061
  8. STICKZENOL A [Concomitant]
     Route: 061
  9. MAGNESIUM OXIDE [Concomitant]
     Dosage: FORM: PERORAL AGENT
     Route: 048
  10. ACTEMRA [Suspect]
     Route: 041
     Dates: start: 20090528, end: 20090528
  11. ACTEMRA [Suspect]
     Indication: RHEUMATOID ARTHRITIS
     Route: 041
     Dates: start: 20090430, end: 20090430
  12. ACTEMRA [Suspect]
     Route: 041
     Dates: start: 20090910, end: 20090910
  13. ACTEMRA [Suspect]
     Route: 041
     Dates: start: 20091008, end: 20091008
  14. PROGRAF [Concomitant]
     Route: 048
  15. SELBEX [Concomitant]
     Dosage: FORM: MINUTE GRAIN
     Route: 048
  16. ACTEMRA [Suspect]
     Route: 041
     Dates: start: 20090625, end: 20090625
  17. ACTEMRA [Suspect]
     Route: 041
  18. ACTEMRA [Suspect]
     Route: 041
  19. ACTEMRA [Suspect]
     Route: 041
  20. PROGRAF [Concomitant]
     Route: 048
  21. FAMOTIDINE [Concomitant]
     Route: 048
  22. SENNOSIDE [Concomitant]
     Route: 048

REACTIONS (6)
  - HYPERCHOLESTEROLAEMIA [None]
  - CELLULITIS [None]
  - DERMAL CYST [None]
  - PRURITUS [None]
  - POLLAKIURIA [None]
  - ASTHMA [None]
